FAERS Safety Report 4333433-2 (Version None)
Quarter: 2004Q1

REPORT INFORMATION
  Report Type: 
  Country: None (occurrence: None)
  Receive Date: 20040329
  Receipt Date: 20031216
  Transmission Date: 20041129
  Serious: No
  Sender: FDA-Public Use
  Company Number: 03P-163-0244855-00

PATIENT
  Age: 66 Year
  Sex: Female

DRUGS (9)
  1. HUMIRA [Suspect]
     Indication: RHEUMATOID ARTHRITIS
     Dosage: 40 MG, 1 IN 2 WK, SUBCUTANEOUS
     Route: 058
     Dates: start: 20031101
  2. ARTHROTEC [Concomitant]
  3. MULTI-VITAMINS [Concomitant]
  4. TOCOPHEROL CONCENTRATE CAP [Concomitant]
  5. ASCORBIC ACID [Concomitant]
  6. ESTROGEN NOS [Concomitant]
  7. MEDROXYPROGESTERONE ACETATE [Concomitant]
  8. FEXOFENADINE HYDROCHLORIDE [Concomitant]
  9. PROPACET 100 [Concomitant]

REACTIONS (4)
  - DISCOMFORT [None]
  - INSOMNIA [None]
  - JOINT SWELLING [None]
  - OEDEMA PERIPHERAL [None]
